FAERS Safety Report 26116487 (Version 1)
Quarter: 2025Q4

REPORT INFORMATION
  Report Type: Spontaneous
  Country: US (occurrence: None)
  Receive Date: 20251202
  Receipt Date: 20251202
  Transmission Date: 20260117
  Serious: Yes (Hospitalization)
  Sender: FDA-CTU
  Company Number: None

PATIENT
  Age: 75 Year
  Sex: Female

DRUGS (2)
  1. ACTEMRA [Suspect]
     Active Substance: TOCILIZUMAB
     Indication: Polymyalgia rheumatica
     Dosage: 162MG WEEKLY
  2. TYENNE [Suspect]
     Active Substance: TOCILIZUMAB-AAZG

REACTIONS (9)
  - Somnolence [None]
  - Peripheral swelling [None]
  - Grip strength decreased [None]
  - Musculoskeletal stiffness [None]
  - Peripheral swelling [None]
  - Blood potassium increased [None]
  - Cardiac disorder [None]
  - Therapy cessation [None]
  - Drug ineffective [None]
